FAERS Safety Report 17546172 (Version 5)
Quarter: 2020Q2

REPORT INFORMATION
  Report Type: Spontaneous
  Country: AU (occurrence: AU)
  Receive Date: 20200316
  Receipt Date: 20200619
  Transmission Date: 20200713
  Serious: Yes (Other)
  Sender: FDA-Public Use
  Company Number: AU-ROCHE-2566640

PATIENT
  Age: 66 Year
  Sex: Female
  Weight: 59.6 kg

DRUGS (18)
  1. RITUXIMAB. [Suspect]
     Active Substance: RITUXIMAB
     Route: 065
     Dates: start: 200201, end: 200406
  2. CYCLOPHOSPHAMIDE. [Suspect]
     Active Substance: CYCLOPHOSPHAMIDE
     Dosage: 6 CYCLES
     Route: 065
     Dates: start: 1998
  3. RITUXIMAB. [Suspect]
     Active Substance: RITUXIMAB
     Dosage: X 4
     Route: 065
     Dates: start: 2000
  4. IBRUTINIB [Concomitant]
     Active Substance: IBRUTINIB
     Indication: B-CELL LYMPHOMA
     Route: 065
     Dates: start: 201701, end: 201709
  5. PREDNISONE. [Concomitant]
     Active Substance: PREDNISONE
     Route: 065
     Dates: start: 1998
  6. RITUXIMAB. [Suspect]
     Active Substance: RITUXIMAB
     Route: 065
     Dates: start: 200908
  7. RITUXIMAB. [Suspect]
     Active Substance: RITUXIMAB
     Route: 065
     Dates: start: 20180814, end: 20190107
  8. RITUXIMAB. [Suspect]
     Active Substance: RITUXIMAB
     Route: 065
     Dates: start: 201110
  9. FLUDARABINE [Suspect]
     Active Substance: FLUDARABINE PHOSPHATE
     Indication: DIFFUSE LARGE B-CELL LYMPHOMA REFRACTORY
     Dosage: FOUR CYCLES
     Route: 065
     Dates: start: 200504, end: 200507
  10. BENDAMUSTINE [Suspect]
     Active Substance: BENDAMUSTINE
     Indication: B-CELL LYMPHOMA
     Route: 065
     Dates: start: 20180814, end: 20190107
  11. VINCRISTINE [Concomitant]
     Active Substance: VINCRISTINE
     Route: 065
     Dates: start: 1998
  12. RITUXIMAB. [Suspect]
     Active Substance: RITUXIMAB
     Dosage: REGIMEN 2
     Route: 065
     Dates: start: 200912, end: 201001
  13. RITUXIMAB. [Suspect]
     Active Substance: RITUXIMAB
     Dosage: FOUR CYCLES
     Route: 065
     Dates: start: 200504, end: 200507
  14. CYCLOPHOSPHAMIDE. [Suspect]
     Active Substance: CYCLOPHOSPHAMIDE
     Indication: DIFFUSE LARGE B-CELL LYMPHOMA REFRACTORY
     Dosage: 4 CYCLES
     Route: 065
     Dates: start: 200504, end: 200507
  15. DOXORUBICIN [Concomitant]
     Active Substance: DOXORUBICIN
     Route: 065
     Dates: start: 1998
  16. RITUXIMAB. [Suspect]
     Active Substance: RITUXIMAB
     Indication: DIFFUSE LARGE B-CELL LYMPHOMA REFRACTORY
     Dosage: X 4
     Route: 065
     Dates: start: 1998
  17. FLUDARABINE [Suspect]
     Active Substance: FLUDARABINE PHOSPHATE
     Dosage: REGIMEN 2
     Route: 065
     Dates: start: 200912, end: 201001
  18. CYCLOPHOSPHAMIDE. [Suspect]
     Active Substance: CYCLOPHOSPHAMIDE
     Dosage: REGIMEN 2
     Route: 065
     Dates: start: 20091201, end: 201001

REACTIONS (13)
  - Neuropathy peripheral [Unknown]
  - Blood pressure measurement [Unknown]
  - Malaise [Unknown]
  - Arthralgia [Unknown]
  - Diffuse large B-cell lymphoma recurrent [Unknown]
  - Vertebral foraminal stenosis [Unknown]
  - Cytopenia [Unknown]
  - Treatment failure [Unknown]
  - Myalgia [Unknown]
  - Haemorrhoids [Unknown]
  - Ureteric obstruction [Unknown]
  - Lower respiratory tract infection [Unknown]
  - Weight decreased [Unknown]

NARRATIVE: CASE EVENT DATE: 200908
